FAERS Safety Report 18304236 (Version 2)
Quarter: 2020Q4

REPORT INFORMATION
  Report Type: Spontaneous
  Country: US (occurrence: US)
  Receive Date: 20200923
  Receipt Date: 20201013
  Transmission Date: 20210113
  Serious: No
  Sender: FDA-Public Use
  Company Number: US-PFIZER INC-2020366993

PATIENT
  Age: 67 Year
  Sex: Female

DRUGS (2)
  1. IBRANCE [Suspect]
     Active Substance: PALBOCICLIB
     Indication: BREAST CANCER FEMALE
     Dosage: 100 MG, CYCLIC ((DAILY FOR 21D THEN 7D OFF)
     Dates: start: 20200210
  2. LETROZOLE. [Suspect]
     Active Substance: LETROZOLE
     Dosage: UNK

REACTIONS (1)
  - Neoplasm progression [Unknown]
